FAERS Safety Report 7296132-3 (Version None)
Quarter: 2011Q1

REPORT INFORMATION
  Report Type: 
  Country: None (occurrence: None)
  Receive Date: 20110211
  Receipt Date: 20110211
  Transmission Date: 20110831
  Serious: Yes (Other)
  Sender: FDA-Public Use
  Company Number: None

PATIENT
  Sex: Female
  Weight: 60.3284 kg

DRUGS (2)
  1. ENALAPRIL MALEATE [Suspect]
     Indication: CARDIAC DISORDER
     Dosage: TWISE A DAY 2.5 TWISE
     Dates: start: 20101220
  2. ENALAPRIL MALEATE [Suspect]
     Indication: CARDIAC DISORDER
     Dosage: TWISE A DAY 5MG TWICE 5MG TWICE 2.5 MG
     Dates: start: 20101101, end: 20101220

REACTIONS (8)
  - ALOPECIA [None]
  - DECREASED APPETITE [None]
  - WEIGHT DECREASED [None]
  - VOMITING [None]
  - PRESYNCOPE [None]
  - ERUCTATION [None]
  - PRODUCT SUBSTITUTION ISSUE [None]
  - EYE SWELLING [None]
